FAERS Safety Report 14098241 (Version 7)
Quarter: 2025Q4

REPORT INFORMATION
  Report Type: Spontaneous
  Country: EU (occurrence: EU)
  Receive Date: 20171017
  Receipt Date: 20251125
  Transmission Date: 20260118
  Serious: Yes (Death, Life-Threatening, Hospitalization, Other)
  Sender: AUROBINDO
  Company Number: EU-AUROBINDO-AUR-APL-2017-41902

PATIENT
  Age: 63 Year

DRUGS (6)
  1. PREDNISONE [Suspect]
     Active Substance: PREDNISONE
     Indication: Immunosuppression
     Dosage: UNK
     Route: 065
  2. PREDNISONE [Suspect]
     Active Substance: PREDNISONE
     Indication: Renal transplant
  3. PREDNISONE [Suspect]
     Active Substance: PREDNISONE
     Indication: Immunosuppressant drug therapy
  4. CYCLOSPORINE [Suspect]
     Active Substance: CYCLOSPORINE
     Indication: Immunosuppression
     Dosage: UNK
     Route: 065
  5. CYCLOSPORINE [Suspect]
     Active Substance: CYCLOSPORINE
     Indication: Renal transplant
  6. CYCLOSPORINE [Suspect]
     Active Substance: CYCLOSPORINE
     Indication: Immunosuppressant drug therapy

REACTIONS (11)
  - Pseudomonas aeruginosa meningitis [Fatal]
  - Partial seizures [Fatal]
  - Pneumonia [Fatal]
  - Subarachnoid haemorrhage [Fatal]
  - CSF protein increased [Fatal]
  - CSF white blood cell count increased [Fatal]
  - Pyrexia [Fatal]
  - Cerebral haemorrhage [Fatal]
  - Depressed level of consciousness [Fatal]
  - Seizure [Unknown]
  - Body temperature increased [Unknown]
